FAERS Safety Report 9694518 (Version 1)
Quarter: 2013Q4

REPORT INFORMATION
  Report Type: Spontaneous
  Country: US (occurrence: US)
  Receive Date: 20131118
  Receipt Date: 20131118
  Transmission Date: 20140711
  Serious: No
  Sender: FDA-Public Use
  Company Number: US-PFIZER INC-2013327484

PATIENT
  Age: 57 Year
  Sex: Female
  Weight: 61.22 kg

DRUGS (2)
  1. XELJANZ [Suspect]
     Indication: RHEUMATOID ARTHRITIS
     Dosage: 5 MG, 2X/DAY
     Route: 048
     Dates: start: 201307, end: 20131106
  2. METFORMIN [Concomitant]
     Indication: DIABETES MELLITUS
     Dosage: UNK

REACTIONS (10)
  - Platelet count decreased [Unknown]
  - Anger [Unknown]
  - Depression [Not Recovered/Not Resolved]
  - Crying [Unknown]
  - Affect lability [Unknown]
  - Aggression [Unknown]
  - Mental disorder [Unknown]
  - Mood altered [Unknown]
  - Herpes zoster [Unknown]
  - Eye infection [Unknown]
